FAERS Safety Report 14674869 (Version 1)
Quarter: 2018Q1

REPORT INFORMATION
  Report Type: Other
  Country: FR (occurrence: FR)
  Receive Date: 20180323
  Receipt Date: 20180323
  Transmission Date: 20180509
  Serious: Yes (Hospitalization)
  Sender: FDA-Public Use
  Company Number: FR-COVIS PHARMA B.V.-2018COV02295

PATIENT
  Age: 95 Year
  Sex: Male
  Weight: 57.7 kg

DRUGS (9)
  1. ALLOPURINOL. [Concomitant]
     Active Substance: ALLOPURINOL
  2. DOLIPRANE [Concomitant]
     Active Substance: ACETAMINOPHEN
  3. OMEPRAZOLE MAGNESIUM. [Suspect]
     Active Substance: OMEPRAZOLE MAGNESIUM
     Dosage: 20 MG, 1X/DAY
     Route: 048
     Dates: end: 20180208
  4. LERCAN [Suspect]
     Active Substance: LERCANIDIPINE
     Indication: HYPERTENSION
     Dosage: 1 DOSAGE UNITS, 1X/DAY
     Route: 048
     Dates: end: 20180215
  5. KARDEGIC [Suspect]
     Active Substance: ASPIRIN DL-LYSINE
     Indication: PROPHYLAXIS
     Dosage: 1 DOSAGE UNITS, UNK
     Route: 048
  6. PROCORALAN [Suspect]
     Active Substance: IVABRADINE
     Indication: CORONARY ARTERY INSUFFICIENCY
     Dosage: 2 DOSAGE UNITS, 1X/DAY
     Route: 048
     Dates: end: 20180215
  7. CHIBRO-PROSCAR [Suspect]
     Active Substance: FINASTERIDE
     Dosage: 1 DOSAGE UNITS, 1X/DAY
     Route: 048
     Dates: end: 20180215
  8. BIPRETERAX [Suspect]
     Active Substance: INDAPAMIDE\PERINDOPRIL
     Indication: HYPERTENSION
     Dosage: 1 DOSAGE UNITS, 1X/DAY
     Route: 048
     Dates: end: 20180208
  9. BISOPROLOL [Suspect]
     Active Substance: BISOPROLOL
     Indication: CORONARY ARTERY INSUFFICIENCY
     Dosage: 1 DOSAGE UNITS, UNK
     Route: 048

REACTIONS (5)
  - Hallucination [Not Recovered/Not Resolved]
  - Acute kidney injury [Not Recovered/Not Resolved]
  - Hypomagnesaemia [Recovering/Resolving]
  - Agitation [Not Recovered/Not Resolved]
  - Hypotension [Not Recovered/Not Resolved]

NARRATIVE: CASE EVENT DATE: 201802
